FAERS Safety Report 8341269-0 (Version None)
Quarter: 2012Q2

REPORT INFORMATION
  Report Type: 
  Country: None (occurrence: None)
  Receive Date: 20120507
  Receipt Date: 20120503
  Transmission Date: 20120825
  Serious: No
  Sender: FDA-Public Use
  Company Number: US-TEVA-336531USA

PATIENT
  Sex: Male

DRUGS (5)
  1. STALEVO 100 [Concomitant]
  2. AZILECT [Suspect]
     Indication: PARKINSON'S DISEASE
     Route: 048
  3. ACETYLSALICYLIC ACID SRT [Concomitant]
  4. ROPINIROLE HYDROCHLORIDE [Concomitant]
  5. ATORVASTATIN CALCIUM [Concomitant]

REACTIONS (2)
  - TONGUE NEOPLASM MALIGNANT STAGE UNSPECIFIED [None]
  - TOOTH DISORDER [None]
